FAERS Safety Report 4293264-9 (Version None)
Quarter: 2004Q1

REPORT INFORMATION
  Report Type: 
  Country: None (occurrence: None)
  Receive Date: 20040126
  Receipt Date: 20031023
  Transmission Date: 20041129
  Serious: No
  Sender: FDA-Public Use
  Company Number: USA031050638

PATIENT
  Age: 93 Year
  Sex: Female

DRUGS (4)
  1. FORTEO [Suspect]
     Indication: OSTEOPOROSIS
     Dosage: 20 UG/DAY
     Dates: start: 20031017, end: 20031022
  2. METHOTREXATE [Concomitant]
  3. CELEBREX [Concomitant]
  4. XANAX [Concomitant]

REACTIONS (6)
  - CYSTITIS [None]
  - DIFFICULTY IN WALKING [None]
  - DIZZINESS [None]
  - EYE SWELLING [None]
  - FEELING ABNORMAL [None]
  - NAUSEA [None]
